FAERS Safety Report 8119736-4 (Version None)
Quarter: 2012Q1

REPORT INFORMATION
  Report Type: 
  Country: None (occurrence: None)
  Receive Date: 20120207
  Receipt Date: 20120131
  Transmission Date: 20120608
  Serious: Yes (Hospitalization)
  Sender: FDA-Public Use
  Company Number: DE-ABBOTT-11P-062-0882847-00

PATIENT
  Sex: Female

DRUGS (4)
  1. PREDNISOLONE [Concomitant]
     Indication: PRODUCT USED FOR UNKNOWN INDICATION
     Dates: start: 20111122
  2. PANTOPRAZOLE [Concomitant]
     Indication: PRODUCT USED FOR UNKNOWN INDICATION
  3. HUMIRA [Suspect]
     Indication: CROHN'S DISEASE
     Route: 058
     Dates: start: 20110414, end: 20111201
  4. AZATHIOPRINE [Concomitant]
     Indication: PRODUCT USED FOR UNKNOWN INDICATION
     Dates: start: 20111204

REACTIONS (7)
  - CENTRAL NERVOUS SYSTEM LESION [None]
  - CENTRAL NERVOUS SYSTEM INFLAMMATION [None]
  - MULTIPLE SCLEROSIS [None]
  - PARAESTHESIA [None]
  - SKIN LESION [None]
  - SENSORY DISTURBANCE [None]
  - INTERVERTEBRAL DISC PROTRUSION [None]
